FAERS Safety Report 9595985 (Version 2)
Quarter: 2013Q4

REPORT INFORMATION
  Report Type: Spontaneous
  Country: US (occurrence: US)
  Receive Date: 20131004
  Receipt Date: 20131004
  Transmission Date: 20140711
  Serious: Yes (Other)
  Sender: FDA-Public Use
  Company Number: US-NAPPMUNDI-USA-2012-0090490

PATIENT
  Sex: Female
  Weight: 88.89 kg

DRUGS (2)
  1. BUTRANS [Suspect]
     Indication: MYALGIA
     Dosage: 5 MCG/HR, WEEKLY
     Route: 062
     Dates: start: 20120627
  2. BUTRANS [Suspect]
     Indication: FIBROMYALGIA
     Dosage: 10 MCG/HR, WEEKLY
     Route: 062
     Dates: end: 20120724

REACTIONS (1)
  - Generalised oedema [Recovered/Resolved]
